FAERS Safety Report 19513900 (Version 1)
Quarter: 2021Q3

REPORT INFORMATION
  Report Type: Spontaneous
  Country: GB (occurrence: GB)
  Receive Date: 20210709
  Receipt Date: 20210709
  Transmission Date: 20211014
  Serious: Yes (Hospitalization)
  Sender: FDA-Public Use
  Company Number: GB-MYLANLABS-2021M1039775

PATIENT
  Age: 68 Year
  Sex: Female
  Weight: 66.4 kg

DRUGS (17)
  1. SERTRALINE [Suspect]
     Active Substance: SERTRALINE HYDROCHLORIDE
     Dosage: UNK
  2. CLENIL MODULITE [Concomitant]
     Active Substance: BECLOMETHASONE DIPROPIONATE
     Indication: ILL-DEFINED DISORDER
     Dosage: UNK
  3. MEROPENEM. [Concomitant]
     Active Substance: MEROPENEM
     Indication: ILL-DEFINED DISORDER
     Dosage: UNK
  4. TROSPIUM CHLORIDE. [Concomitant]
     Active Substance: TROSPIUM CHLORIDE
     Indication: ILL-DEFINED DISORDER
     Dosage: UNK
  5. MOMETASONE FUROATE. [Concomitant]
     Active Substance: MOMETASONE FUROATE
     Indication: ILL-DEFINED DISORDER
     Dosage: UNK
  6. QUININE [Concomitant]
     Active Substance: QUININE
     Indication: ILL-DEFINED DISORDER
     Dosage: UNK
  7. DALTEPARIN [Concomitant]
     Active Substance: DALTEPARIN
     Indication: ILL-DEFINED DISORDER
     Dosage: UNK
  8. FERROUS SULFATE. [Concomitant]
     Active Substance: FERROUS SULFATE
     Indication: ILL-DEFINED DISORDER
     Dosage: UNK
  9. SERTRALINE [Suspect]
     Active Substance: SERTRALINE HYDROCHLORIDE
     Indication: DEPRESSION
     Dosage: 50 MILLIGRAM, QD
     Route: 048
     Dates: start: 20210624, end: 20210629
  10. PARACETAMOL [Concomitant]
     Active Substance: ACETAMINOPHEN
     Indication: ILL-DEFINED DISORDER
     Dosage: UNK
  11. SUDOCREM [Concomitant]
     Active Substance: LANOLIN\ZINC OXIDE
     Indication: ILL-DEFINED DISORDER
     Dosage: UNK
  12. LORAZEPAM. [Concomitant]
     Active Substance: LORAZEPAM
     Indication: ILL-DEFINED DISORDER
     Dosage: UNK
  13. MIRABEGRON [Concomitant]
     Active Substance: MIRABEGRON
     Indication: ILL-DEFINED DISORDER
     Dosage: UNK
  14. ADCAL D3 [Concomitant]
     Active Substance: CALCIUM CARBONATE\CHOLECALCIFEROL
     Indication: ILL-DEFINED DISORDER
     Dosage: UNK
  15. DOCUSATE SODIUM. [Concomitant]
     Active Substance: DOCUSATE SODIUM
     Indication: ILL-DEFINED DISORDER
     Dosage: UNK
  16. DOUBLEBASE [Concomitant]
     Active Substance: ISOPROPYL MYRISTATE\PARAFFIN
     Indication: ILL-DEFINED DISORDER
     Dosage: UNK
  17. PHOSPHATE SANDOZ [Concomitant]
     Active Substance: SODIUM PHOSPHATE, MONOBASIC, ANHYDROUS
     Indication: ILL-DEFINED DISORDER
     Dosage: UNK

REACTIONS (4)
  - Hypertonia [Unknown]
  - Fall [Unknown]
  - Muscular weakness [Unknown]
  - Dyskinesia [Unknown]

NARRATIVE: CASE EVENT DATE: 20210629
